FAERS Safety Report 7914556-5 (Version None)
Quarter: 2011Q4

REPORT INFORMATION
  Report Type: 
  Country: None (occurrence: None)
  Receive Date: 20111115
  Receipt Date: 20111031
  Transmission Date: 20120403
  Serious: Yes (Other)
  Sender: FDA-Public Use
  Company Number: PHHY2011AU097393

PATIENT
  Age: 60 Year
  Sex: Female

DRUGS (7)
  1. TACROLIMUS [Concomitant]
     Indication: RENAL TRANSPLANT
     Dosage: UNK UKN, UNK
  2. MYCOPHENOLATE MOFETIL [Concomitant]
     Indication: RENAL TRANSPLANT
     Dosage: 2 G/DAY
  3. PREDNISOLONE [Concomitant]
     Dosage: 20 MG/DAY
  4. MYCOPHENOLATE MOFETIL [Concomitant]
     Dosage: 1000 MG, BID
  5. PREDNISOLONE [Concomitant]
     Dosage: 50 MG, DAILY
  6. PREDNISOLONE [Concomitant]
     Dosage: 10 MG, DAILY
  7. BASILIXIMAB [Suspect]
     Indication: RENAL TRANSPLANT
     Dosage: 20 MG, ON DAYS 1 AND 4

REACTIONS (6)
  - RENAL NECROSIS [None]
  - NEPHROSCLEROSIS [None]
  - GLOMERULONEPHRITIS RAPIDLY PROGRESSIVE [None]
  - HAEMATURIA [None]
  - BLOOD CREATININE INCREASED [None]
  - RENAL VASCULITIS [None]
